FAERS Safety Report 15196682 (Version 1)
Quarter: 2018Q3

REPORT INFORMATION
  Report Type: Spontaneous
  Country: US (occurrence: US)
  Receive Date: 20180725
  Receipt Date: 20180725
  Transmission Date: 20181010
  Serious: Yes (Hospitalization, Other)
  Sender: FDA-Public Use
  Company Number: US-BRACCO-2018US03853

PATIENT
  Sex: Female

DRUGS (1)
  1. MULTIHANCE [Suspect]
     Active Substance: GADOBENATE DIMEGLUMINE
     Indication: NUCLEAR MAGNETIC RESONANCE IMAGING
     Dosage: 9 ML, SINGLE
     Route: 042
     Dates: start: 20180716, end: 20180716

REACTIONS (6)
  - Foaming at mouth [Recovered/Resolved]
  - Dyspnoea [Recovered/Resolved]
  - Anal incontinence [Recovered/Resolved]
  - Urinary incontinence [Recovered/Resolved]
  - Unresponsive to stimuli [Recovered/Resolved]
  - Hyperhidrosis [Recovered/Resolved]

NARRATIVE: CASE EVENT DATE: 20180716
